FAERS Safety Report 6859946-7 (Version None)
Quarter: 2010Q3

REPORT INFORMATION
  Report Type: 
  Country: None (occurrence: None)
  Receive Date: 20100720
  Receipt Date: 20100707
  Transmission Date: 20110219
  Serious: Yes (Other)
  Sender: FDA-Public Use
  Company Number: CA-SOLVAY-00210004299

PATIENT
  Sex: Female

DRUGS (2)
  1. COVERSYL TABLET 4 MG [Suspect]
     Indication: PRODUCT USED FOR UNKNOWN INDICATION
     Dosage: DAILY DOSE: 2 MILLIGRAM(S)
     Route: 048
  2. TREATMENT FOR MYASTHENIA GRAVIS [Concomitant]
     Indication: MYASTHENIA GRAVIS
     Dosage: DAILY DOSE:  UNKNOWN
     Route: 065

REACTIONS (1)
  - MYASTHENIA GRAVIS [None]
